FAERS Safety Report 13262660 (Version 1)
Quarter: 2017Q1

REPORT INFORMATION
  Report Type: Spontaneous
  Country: US (occurrence: US)
  Receive Date: 20170223
  Receipt Date: 20170223
  Transmission Date: 20170428
  Serious: Yes (Hospitalization, Other)
  Sender: FDA-Public Use
  Company Number: US-ZYDUS-013935

PATIENT
  Age: 52 Year
  Sex: Female

DRUGS (3)
  1. HYPERICUM PERFORATUM [Concomitant]
     Active Substance: HYPERICUM PERFORATUM
     Indication: MAJOR DEPRESSION
     Route: 065
  2. APIUM GRAVEOLENS [Interacting]
     Active Substance: CELERY SEED
     Indication: MENOPAUSE
     Route: 065
  3. VENLAFAXINE/VENLAFAXINE HYDROCHLORIDE [Suspect]
     Active Substance: VENLAFAXINE HYDROCHLORIDE
     Indication: MAJOR DEPRESSION
     Route: 065

REACTIONS (16)
  - Distractibility [Recovered/Resolved]
  - Logorrhoea [Recovered/Resolved]
  - Mood altered [Recovered/Resolved]
  - Bipolar disorder [Recovered/Resolved]
  - Hallucination, visual [Recovered/Resolved]
  - Drug interaction [Recovered/Resolved]
  - Herbal interaction [Recovered/Resolved]
  - Confusional state [Recovered/Resolved]
  - Speech disorder [Recovered/Resolved]
  - Thinking abnormal [Recovered/Resolved]
  - Mania [Recovered/Resolved]
  - Abnormal behaviour [Recovered/Resolved]
  - Aspartate aminotransferase increased [Recovered/Resolved]
  - Impaired work ability [Recovered/Resolved]
  - Pressure of speech [Recovered/Resolved]
  - Emotional distress [Recovered/Resolved]
